FAERS Safety Report 17791185 (Version 1)
Quarter: 2020Q2

REPORT INFORMATION
  Report Type: Spontaneous
  Country: RU (occurrence: RU)
  Receive Date: 20200515
  Receipt Date: 20200515
  Transmission Date: 20200714
  Serious: Yes (Hospitalization)
  Sender: FDA-Public Use
  Company Number: RU-DRREDDYS-RUS/RUS/20/0122903

PATIENT
  Age: 68 Year
  Sex: Female

DRUGS (2)
  1. CIPROLET 500MG TABLETS [Suspect]
     Active Substance: CIPROFLOXACIN
     Indication: ECZEMA
     Route: 048
     Dates: start: 20190711, end: 20190712
  2. NIMESIL [Concomitant]
     Active Substance: NIMESULIDE
     Indication: PRODUCT USED FOR UNKNOWN INDICATION
     Route: 048
     Dates: start: 20190711, end: 20190715

REACTIONS (1)
  - Rash pustular [Recovered/Resolved]

NARRATIVE: CASE EVENT DATE: 20190712
